FAERS Safety Report 9337915 (Version 2)
Quarter: 2013Q2

REPORT INFORMATION
  Report Type: Spontaneous
  Country: CA (occurrence: CA)
  Receive Date: 20130608
  Receipt Date: 20130610
  Transmission Date: 20140414
  Serious: Yes (Other)
  Sender: FDA-Public Use
  Company Number: CA-ROCHE-1233805

PATIENT
  Age: 54 Year
  Sex: Male
  Weight: 74.8 kg

DRUGS (4)
  1. AVASTIN [Suspect]
     Indication: COLORECTAL CANCER
     Route: 042
     Dates: start: 201110
  2. FOLINIC ACID [Suspect]
     Indication: COLORECTAL CANCER
     Route: 042
     Dates: start: 201110, end: 2013
  3. FLUOROURACIL [Suspect]
     Indication: COLORECTAL CANCER
     Route: 042
     Dates: start: 201110, end: 2013
  4. IRINOTECAN HYDROCHLORIDE [Suspect]
     Indication: COLORECTAL CANCER
     Route: 042
     Dates: start: 201110, end: 2013

REACTIONS (3)
  - Colectomy [Unknown]
  - Ileostomy [Unknown]
  - Chronic obstructive pulmonary disease [Not Recovered/Not Resolved]
